FAERS Safety Report 18613763 (Version 1)
Quarter: 2020Q4

REPORT INFORMATION
  Report Type: Spontaneous
  Country: US (occurrence: US)
  Receive Date: 20201214
  Receipt Date: 20201214
  Transmission Date: 20210114
  Serious: No
  Sender: FDA-Public Use
  Company Number: US-ABBVIE-20K-163-3391244-00

PATIENT
  Sex: Female

DRUGS (1)
  1. IMBRUVICA [Suspect]
     Active Substance: IBRUTINIB
     Indication: PRODUCT USED FOR UNKNOWN INDICATION
     Route: 048

REACTIONS (7)
  - Arthralgia [Unknown]
  - Stomatitis [Unknown]
  - Myalgia [Unknown]
  - Decreased appetite [Unknown]
  - Thrombosis [Unknown]
  - Constipation [Unknown]
  - Rash [Unknown]
